FAERS Safety Report 5336206-7 (Version None)
Quarter: 2007Q2

REPORT INFORMATION
  Report Type: 
  Country: None (occurrence: None)
  Receive Date: 20070315
  Receipt Date: 20061221
  Transmission Date: 20071010
  Serious: No
  Sender: FDA-Public Use
  Company Number: BDI-008971

PATIENT
  Sex: Female
  Weight: 90.9 kg

DRUGS (2)
  1. MULTIHANCE [Suspect]
     Indication: HYPOAESTHESIA
     Dosage: 20 ML ONCE IV
     Route: 042
     Dates: start: 20061220, end: 20061220
  2. MULTIHANCE [Suspect]
     Indication: NUCLEAR MAGNETIC RESONANCE IMAGING BRAIN
     Dosage: 20 ML ONCE IV
     Route: 042
     Dates: start: 20061220, end: 20061220

REACTIONS (1)
  - HYPERSENSITIVITY [None]
